FAERS Safety Report 25038441 (Version 6)
Quarter: 2025Q3

REPORT INFORMATION
  Report Type: Report from Study
  Country: US (occurrence: US)
  Receive Date: 20250304
  Receipt Date: 20250911
  Transmission Date: 20251020
  Serious: Yes (Hospitalization, Other)
  Sender: ABBVIE
  Company Number: US-ABBVIE-6155721

PATIENT
  Age: 56 Year
  Sex: Female

DRUGS (7)
  1. RINVOQ [Suspect]
     Active Substance: UPADACITINIB
     Indication: Rheumatoid arthritis
     Dosage: FORM STRENGTH:15MG
     Route: 048
     Dates: start: 20240813, end: 20250212
  2. RINVOQ [Suspect]
     Active Substance: UPADACITINIB
     Indication: Rheumatoid arthritis
     Dosage: FORM STRENGTH:15MG
     Route: 048
     Dates: start: 202407
  3. RINVOQ [Suspect]
     Active Substance: UPADACITINIB
     Indication: Rheumatoid arthritis
     Route: 048
     Dates: start: 20240812
  4. RINVOQ [Suspect]
     Active Substance: UPADACITINIB
     Indication: Rheumatoid arthritis
     Dosage: STRENGTH: 15 MG
     Route: 048
     Dates: start: 2025, end: 202502
  5. RINVOQ [Suspect]
     Active Substance: UPADACITINIB
     Indication: Rheumatoid arthritis
     Dosage: STRENGTH: 15 MG
     Route: 048
     Dates: start: 202502, end: 202502
  6. RINVOQ [Suspect]
     Active Substance: UPADACITINIB
     Indication: Rheumatoid arthritis
     Dosage: END DATE- MAR 2025?STRENGTH: 15 MG
     Route: 048
     Dates: start: 20250321
  7. RINVOQ [Suspect]
     Active Substance: UPADACITINIB
     Indication: Rheumatoid arthritis
     Dosage: STRENGTH: 15 MG
     Route: 048
     Dates: start: 202504, end: 20250902

REACTIONS (15)
  - Intestinal haemorrhage [Recovered/Resolved]
  - Rectal haemorrhage [Recovering/Resolving]
  - Sinusitis [Unknown]
  - Post procedural complication [Unknown]
  - Gastroenteritis [Unknown]
  - Gastrointestinal infection [Unknown]
  - Rheumatoid arthritis [Unknown]
  - Osteoarthritis [Recovering/Resolving]
  - Diverticular perforation [Unknown]
  - Cartilage atrophy [Unknown]
  - Panic attack [Recovered/Resolved]
  - Thrombosis [Recovering/Resolving]
  - Urinary tract infection [Unknown]
  - Intestinal haemorrhage [Unknown]
  - Diarrhoea haemorrhagic [Unknown]

NARRATIVE: CASE EVENT DATE: 20241201
